FAERS Safety Report 18040937 (Version 1)
Quarter: 2020Q3

REPORT INFORMATION
  Report Type: Spontaneous
  Country: US (occurrence: US)
  Receive Date: 20200718
  Receipt Date: 20200718
  Transmission Date: 20201103
  Serious: Yes (Death, Hospitalization)
  Sender: FDA-Public Use
  Company Number: US-PURDUE-USA-2020-0157860

PATIENT
  Sex: Female

DRUGS (1)
  1. OXYCONTIN [Suspect]
     Active Substance: OXYCODONE HYDROCHLORIDE
     Indication: PAIN
     Dosage: UNK
     Route: 048

REACTIONS (5)
  - Intestinal perforation [Unknown]
  - Intestinal obstruction [Unknown]
  - Septic shock [Fatal]
  - Abdominal pain lower [Unknown]
  - Constipation [Unknown]

NARRATIVE: CASE EVENT DATE: 2012
